FAERS Safety Report 16894548 (Version 2)
Quarter: 2021Q4

REPORT INFORMATION
  Report Type: Spontaneous
  Country: US (occurrence: US)
  Receive Date: 20191008
  Receipt Date: 20211011
  Transmission Date: 20220303
  Serious: No
  Sender: FDA-Public Use
  Company Number: US-PFIZER INC-2019430641

PATIENT
  Age: 53 Year
  Sex: Female

DRUGS (1)
  1. LYRICA [Suspect]
     Active Substance: PREGABALIN
     Dosage: 25 MG, UNK

REACTIONS (2)
  - Pain [Unknown]
  - Nerve injury [Unknown]
